FAERS Safety Report 19052514 (Version 1)
Quarter: 2021Q1

REPORT INFORMATION
  Report Type: Report from Study
  Country: None (occurrence: CA)
  Receive Date: 20210324
  Receipt Date: 20210324
  Transmission Date: 20210420
  Serious: Yes (Other)
  Sender: FDA-Public Use
  Company Number: CA-ABBVIE-21K-028-3823569-00

PATIENT
  Sex: Female

DRUGS (1)
  1. RINVOQ [Suspect]
     Active Substance: UPADACITINIB
     Indication: RHEUMATOID ARTHRITIS
     Route: 048

REACTIONS (6)
  - Rotator cuff syndrome [Unknown]
  - Humerus fracture [Unknown]
  - Fall [Unknown]
  - Arthralgia [Unknown]
  - Pain in extremity [Unknown]
  - Limb injury [Unknown]
